FAERS Safety Report 5874714-0 (Version None)
Quarter: 2008Q3

REPORT INFORMATION
  Report Type: 
  Country: None (occurrence: None)
  Receive Date: 20080903
  Receipt Date: 20080827
  Transmission Date: 20090109
  Serious: Yes (Hospitalization)
  Sender: FDA-Public Use
  Company Number: 2008JP002174

PATIENT
  Age: 56 Year
  Sex: Male
  Weight: 58.5 kg

DRUGS (8)
  1. PROGRAF [Suspect]
     Indication: MYASTHENIA GRAVIS
     Dosage: 3 MG, /D, ORAL
     Route: 048
     Dates: start: 19990101, end: 20080101
  2. PREDNISOLONE [Concomitant]
  3. MYTELASE (AMBENONIUM CHLORIDE) FORMULATION UNKNOWN [Concomitant]
  4. GASMOTIN (MOSAPRIDE CITRATE) FORMULATION UNKNOWN [Concomitant]
  5. TAKEPRON (LANSOPRAZOLE) FORMULATION UNKNOWN [Concomitant]
  6. CALCIUM LACTATE (CALCIUM LACTATE) FORMULATION UNKNOWN [Concomitant]
  7. SCOPOLIA EXTRACT (SCOPOLIA CARNIOLICA EXTRACT) FORMULATION UNKNOWN [Concomitant]
  8. FOSAMAC (ALENDRONATE SODIUM) FORMULATION UNKNOWN [Concomitant]

REACTIONS (4)
  - APLASIA PURE RED CELL [None]
  - DRUG INTERACTION [None]
  - DYSPNOEA EXERTIONAL [None]
  - FATIGUE [None]
